FAERS Safety Report 12610652 (Version 3)
Quarter: 2017Q1

REPORT INFORMATION
  Report Type: Report from Study
  Country: ID (occurrence: ID)
  Receive Date: 20160801
  Receipt Date: 20170103
  Transmission Date: 20170428
  Serious: Yes (Life-Threatening, Hospitalization, Other)
  Sender: FDA-Public Use
  Company Number: ID-BAYER-2015-494565

PATIENT
  Age: 67 Year
  Sex: Male

DRUGS (2)
  1. NEXAVAR [Suspect]
     Active Substance: SORAFENIB
     Indication: HEPATOCELLULAR CARCINOMA
     Dosage: 200 MG, BID
     Route: 048
     Dates: start: 20151115
  2. NEXAVAR [Suspect]
     Active Substance: SORAFENIB
     Indication: HEPATOCELLULAR CARCINOMA
     Dosage: 200 MG, BID
     Route: 048
     Dates: start: 201512

REACTIONS (9)
  - Haemoglobin decreased [Recovering/Resolving]
  - Ageusia [None]
  - Alopecia [Not Recovered/Not Resolved]
  - Hepatocellular carcinoma [None]
  - Arthralgia [Not Recovered/Not Resolved]
  - General physical health deterioration [None]
  - Fatigue [Not Recovered/Not Resolved]
  - Asthenia [None]
  - Decreased appetite [Recovering/Resolving]

NARRATIVE: CASE EVENT DATE: 20151121
